FAERS Safety Report 10522050 (Version 2)
Quarter: 2014Q4

REPORT INFORMATION
  Report Type: Spontaneous
  Country: FR (occurrence: FR)
  Receive Date: 20141016
  Receipt Date: 20141104
  Transmission Date: 20150528
  Serious: Yes (Other)
  Sender: FDA-Public Use
  Company Number: FR-ASTRAZENECA-2014SE76886

PATIENT
  Age: 26257 Day
  Sex: Male

DRUGS (10)
  1. TENORMIN [Suspect]
     Active Substance: ATENOLOL
     Indication: ANGINA PECTORIS
     Route: 048
     Dates: start: 1986, end: 2014
  2. FRESENIUS [Concomitant]
  3. NATISPRAY [Concomitant]
     Active Substance: NITROGLYCERIN
     Indication: ANGINA PECTORIS
     Dosage: PUNCTUALLY
  4. TENORMIN [Suspect]
     Active Substance: ATENOLOL
     Indication: ANGINA PECTORIS
     Route: 048
     Dates: start: 2014, end: 20141012
  5. LEVOTHYROX [Concomitant]
     Active Substance: LEVOTHYROXINE
  6. ALFUSOZINE [Concomitant]
  7. KARDEGIC [Concomitant]
     Active Substance: ASPIRIN LYSINE
  8. LORAZEPAM. [Concomitant]
     Active Substance: LORAZEPAM
     Indication: ANXIETY
  9. COPD TREATMENT [Concomitant]
     Indication: CHRONIC OBSTRUCTIVE PULMONARY DISEASE
  10. CRESTOR [Concomitant]
     Active Substance: ROSUVASTATIN CALCIUM

REACTIONS (2)
  - Erectile dysfunction [Not Recovered/Not Resolved]
  - Suicidal ideation [Not Recovered/Not Resolved]

NARRATIVE: CASE EVENT DATE: 20140925
